FAERS Safety Report 7639620-X (Version None)
Quarter: 2011Q3

REPORT INFORMATION
  Report Type: 
  Country: None (occurrence: None)
  Receive Date: 20110727
  Receipt Date: 20110719
  Transmission Date: 20111222
  Serious: Yes (Hospitalization)
  Sender: FDA-Public Use
  Company Number: US-ABBOTT-11P-163-0839556-00

PATIENT
  Sex: Female
  Weight: 113.05 kg

DRUGS (5)
  1. MULTI-VITAMIN [Concomitant]
     Indication: VITAMIN SUPPLEMENTATION
  2. HUMIRA [Suspect]
     Indication: PSORIATIC ARTHROPATHY
     Route: 058
     Dates: start: 20110620, end: 20110620
  3. HUMIRA [Suspect]
     Indication: PSORIASIS
  4. SYNTHROID [Concomitant]
     Indication: HYPOTHYROIDISM
  5. EVENING PRIMROSE [Concomitant]
     Indication: PHYTOTHERAPY

REACTIONS (4)
  - PYREXIA [None]
  - CELLULITIS [None]
  - OEDEMA PERIPHERAL [None]
  - ERYTHEMA [None]
